FAERS Safety Report 6945411-5 (Version None)
Quarter: 2010Q3

REPORT INFORMATION
  Report Type: 
  Country: None (occurrence: None)
  Receive Date: 20100827
  Receipt Date: 20100823
  Transmission Date: 20110219
  Serious: Yes (Death)
  Sender: FDA-Public Use
  Company Number: PHHY2010RU56402

PATIENT
  Sex: Male

DRUGS (11)
  1. EXELON [Suspect]
     Indication: CONFUSIONAL STATE
     Dosage: 3 MG, DAILY
     Route: 048
     Dates: start: 20100422, end: 20100426
  2. EXELON [Suspect]
     Dosage: 6 MG DAILY
     Route: 048
  3. EXELON [Suspect]
     Dosage: 9 MG, DAILY
     Route: 048
     Dates: end: 20100426
  4. CYTOFLAVIN [Concomitant]
     Dosage: 10 ML DROP BY DROP
     Route: 042
     Dates: start: 20100422
  5. CEREBROLYSIN [Concomitant]
     Dosage: 10 ML STREAM INTRODUCTION
     Route: 042
     Dates: start: 20100422
  6. PANANGIN [Concomitant]
     Dosage: 10 ML DROP-BY-DROP
     Route: 042
     Dates: start: 20100422
  7. HEPARIN [Concomitant]
     Dosage: 24000 UN DAILY
     Dates: start: 20100422
  8. NIFEDIPINE [Concomitant]
     Dosage: 30 MG DAILY
     Dates: start: 20100422
  9. DEXASON [Concomitant]
     Dosage: 16 MG/DAY
     Dates: start: 20100427
  10. MANNITOL [Concomitant]
     Dosage: 90 G DAILY DROP-BY -DROP
     Route: 042
     Dates: start: 20100422
  11. QUAMATEL [Concomitant]
     Dosage: 20MG, UNK
     Route: 042
     Dates: start: 20100427

REACTIONS (2)
  - BRAIN OEDEMA [None]
  - CARDIOPULMONARY FAILURE [None]
